FAERS Safety Report 7222469-X (Version None)
Quarter: 2011Q1

REPORT INFORMATION
  Report Type: 
  Country: None (occurrence: None)
  Receive Date: 20110104
  Receipt Date: 20101220
  Transmission Date: 20110831
  Serious: Yes (Life-Threatening, Hospitalization)
  Sender: FDA-Public Use
  Company Number: IDA-00472

PATIENT
  Sex: Female

DRUGS (3)
  1. PROPRANOLOL [Suspect]
     Indication: HAEMANGIOMA
     Dosage: 1 MG/KG/2 MG/KG DAILY, ORAL
     Route: 048
  2. PROPRANOLOL [Suspect]
     Indication: HAEMANGIOMA
     Dosage: 1 MG/KG/2 MG/KG DAILY, ORAL
     Route: 048
  3. CEFUROXIME [Concomitant]

REACTIONS (5)
  - HYPERKALAEMIA [None]
  - TUMOUR LYSIS SYNDROME [None]
  - STAPHYLOCOCCAL INFECTION [None]
  - BLOOD LACTATE DEHYDROGENASE INCREASED [None]
  - HYPOTENSION [None]
